FAERS Safety Report 8828052 (Version 1)
Quarter: 2012Q4

REPORT INFORMATION
  Report Type: Report from Study
  Country: CA (occurrence: CA)
  Receive Date: 20121005
  Receipt Date: 20121005
  Transmission Date: 20130627
  Serious: Yes (Other)
  Sender: FDA-Public Use
  Company Number: CA-JNJFOC-20120910818

PATIENT
  Sex: Female
  Weight: 114.3 kg

DRUGS (5)
  1. REMICADE [Suspect]
     Indication: RHEUMATOID ARTHRITIS
     Route: 042
  2. THYROXINE [Concomitant]
     Route: 065
  3. ARAVA [Concomitant]
     Route: 065
  4. OXYBUTYNIN [Concomitant]
     Route: 065
  5. FLUOXETINE [Concomitant]
     Indication: DEPRESSION
     Route: 065

REACTIONS (1)
  - Cyst [Unknown]
